FAERS Safety Report 9114628 (Version 1)
Quarter: 2013Q1

REPORT INFORMATION
  Report Type: Spontaneous
  Country: CN (occurrence: None)
  Receive Date: 20130129
  Receipt Date: 20130129
  Transmission Date: 20140127
  Serious: No
  Sender: FDA-Public Use
  Company Number: VAL_01310_2013

PATIENT
  Age: 41 Year
  Sex: Male
  Weight: 65 kg

DRUGS (1)
  1. LOTENSIN [Suspect]
     Indication: NEPHRITIS
     Route: 048
     Dates: start: 20101123, end: 20101127

REACTIONS (3)
  - Hypotension [None]
  - Headache [None]
  - Head discomfort [None]
